FAERS Safety Report 12869648 (Version 1)
Quarter: 2016Q4

REPORT INFORMATION
  Report Type: Spontaneous
  Country: US (occurrence: US)
  Receive Date: 20161020
  Receipt Date: 20161020
  Transmission Date: 20170207
  Serious: Yes (Death)
  Sender: FDA-Public Use
  Company Number: None

PATIENT
  Age: 46 Year
  Sex: Male
  Weight: 135 kg

DRUGS (6)
  1. CITALOPRAM [Suspect]
     Active Substance: CITALOPRAM HYDROBROMIDE
     Indication: SCHIZOAFFECTIVE DISORDER
     Dosage: ?          QUANTITY:2 TABLET(S);?
     Route: 048
     Dates: start: 20130510, end: 20131112
  2. CLOZAPINE. [Suspect]
     Active Substance: CLOZAPINE
  3. BENZTROPINE [Concomitant]
     Active Substance: BENZTROPINE
  4. ADVIL [Concomitant]
     Active Substance: IBUPROFEN
  5. HALOPERIDOL. [Concomitant]
     Active Substance: HALOPERIDOL
  6. ALPRAZOLAM. [Concomitant]
     Active Substance: ALPRAZOLAM

REACTIONS (1)
  - Toxicity to various agents [None]

NARRATIVE: CASE EVENT DATE: 20131112
